FAERS Safety Report 5120275-3 (Version None)
Quarter: 2006Q4

REPORT INFORMATION
  Report Type: 
  Country: None (occurrence: None)
  Receive Date: 20061004
  Receipt Date: 20060929
  Transmission Date: 20070319
  Serious: Yes (Other)
  Sender: FDA-Public Use
  Company Number: US-BRISTOL-MYERS SQUIBB COMPANY-13525886

PATIENT
  Age: 47 Year
  Sex: Male
  Weight: 75 kg

DRUGS (8)
  1. ORENCIA [Suspect]
     Indication: RHEUMATOID ARTHRITIS
     Route: 042
  2. MOBIC [Concomitant]
  3. ARAVA [Concomitant]
  4. FOLIC ACID [Concomitant]
  5. ASPIRIN [Concomitant]
  6. PRAVACHOL [Concomitant]
  7. BENICAR [Concomitant]
  8. LORCET-HD [Concomitant]

REACTIONS (4)
  - ARTHRALGIA [None]
  - CROHN'S DISEASE [None]
  - MYALGIA [None]
  - PYREXIA [None]
